FAERS Safety Report 15599321 (Version 1)
Quarter: 2018Q4

REPORT INFORMATION
  Report Type: Spontaneous
  Country: GB (occurrence: GB)
  Receive Date: 20181108
  Receipt Date: 20181108
  Transmission Date: 20190205
  Serious: Yes (Other)
  Sender: FDA-Public Use
  Company Number: PHBS2009GB00985

PATIENT
  Age: 47 Year
  Sex: Female

DRUGS (2)
  1. DICLOFENAC [Suspect]
     Active Substance: DICLOFENAC
     Indication: PRODUCT USED FOR UNKNOWN INDICATION
     Dosage: 75 MG, BID
     Route: 048
  2. OMEPRAZOLE. [Interacting]
     Active Substance: OMEPRAZOLE
     Indication: PROPHYLAXIS AGAINST GASTROINTESTINAL ULCER
     Dosage: 20 MG, BID
     Route: 048

REACTIONS (9)
  - Intestinal villi atrophy [Unknown]
  - Gastrointestinal ulcer [Unknown]
  - Pallor [Unknown]
  - Gastrointestinal erosion [Unknown]
  - Endoscopy abnormal [Unknown]
  - Duodenal ulcer [Unknown]
  - Drug interaction [Unknown]
  - Mucosal erosion [Unknown]
  - Gastrointestinal mucosa hyperaemia [Unknown]
